FAERS Safety Report 14732567 (Version 3)
Quarter: 2018Q3

REPORT INFORMATION
  Report Type: Spontaneous
  Country: JP (occurrence: JP)
  Receive Date: 20180409
  Receipt Date: 20180711
  Transmission Date: 20181010
  Serious: Yes (Other)
  Sender: FDA-Public Use
  Company Number: JP-ROCHE-2102274

PATIENT
  Age: 77 Year
  Sex: Male
  Weight: 69 kg

DRUGS (5)
  1. HERCEPTIN [Suspect]
     Active Substance: TRASTUZUMAB
     Dosage: DOSE INTERVAL UNCERTAINTY
     Route: 041
  2. XELODA [Suspect]
     Active Substance: CAPECITABINE
     Indication: GASTRIC CANCER
     Dosage: 2 WEEKS ADMINISTRATION FOLLOWED BY 1 WEEK REST
     Route: 048
     Dates: start: 2013
  3. XELODA [Suspect]
     Active Substance: CAPECITABINE
     Route: 048
  4. HERCEPTIN [Suspect]
     Active Substance: TRASTUZUMAB
     Indication: GASTRIC CANCER
     Route: 041
     Dates: start: 2013
  5. CISPLATIN. [Suspect]
     Active Substance: CISPLATIN
     Indication: GASTRIC CANCER
     Dosage: DOSE INTERVAL UNCERTAINTY
     Route: 041

REACTIONS (3)
  - Neutrophil count decreased [Recovering/Resolving]
  - Acute kidney injury [Recovering/Resolving]
  - Palmar-plantar erythrodysaesthesia syndrome [Recovering/Resolving]

NARRATIVE: CASE EVENT DATE: 2013
